FAERS Safety Report 5036989-X (Version None)
Quarter: 2006Q2

REPORT INFORMATION
  Report Type: 
  Country: None (occurrence: None)
  Receive Date: 20060601
  Receipt Date: 20060212
  Transmission Date: 20061013
  Serious: No
  Sender: FDA-Public Use
  Company Number: 2006PV008595

PATIENT
  Sex: Male

DRUGS (18)
  1. BYETTA [Suspect]
     Indication: DIABETES MELLITUS NON-INSULIN-DEPENDENT
     Dosage: 5 MCG;BID;SC
     Route: 058
     Dates: start: 20060127
  2. ELOXATIN [Concomitant]
  3. LEUCOVORIN CALCIUM [Concomitant]
  4. FLUOROURACL 5FU [Concomitant]
  5. LANTUS [Concomitant]
  6. GLUCOPHAGE [Concomitant]
  7. GLUCOTROL [Concomitant]
  8. TIZAC [Concomitant]
  9. LASIX [Concomitant]
  10. MOBIC [Concomitant]
  11. LOW PRESSURE [Concomitant]
  12. LENOXIN [Concomitant]
  13. COUMADIN [Concomitant]
  14. ASPIRIN [Concomitant]
  15. HYTRIN [Concomitant]
  16. NIASPAN [Concomitant]
  17. IRON [Concomitant]
  18. CLARITIN [Concomitant]

REACTIONS (3)
  - DECREASED APPETITE [None]
  - PLATELET COUNT DECREASED [None]
  - WEIGHT DECREASED [None]
